FAERS Safety Report 25570761 (Version 3)
Quarter: 2025Q3

REPORT INFORMATION
  Report Type: Report from Study
  Country: US (occurrence: US)
  Receive Date: 20250717
  Receipt Date: 20250909
  Transmission Date: 20251021
  Serious: Yes (Other)
  Sender: ABBVIE
  Company Number: US-ABBVIE-6370644

PATIENT
  Age: 78 Year
  Sex: Male

DRUGS (2)
  1. HUMIRA [Suspect]
     Active Substance: ADALIMUMAB
     Indication: Colitis ulcerative
     Route: 058
     Dates: start: 20181025
  2. HUMIRA [Suspect]
     Active Substance: ADALIMUMAB
     Route: 058

REACTIONS (6)
  - Cartilage injury [Not Recovered/Not Resolved]
  - Rash papular [Not Recovered/Not Resolved]
  - Toothache [Not Recovered/Not Resolved]
  - Tooth infection [Not Recovered/Not Resolved]
  - Rash pruritic [Not Recovered/Not Resolved]
  - Ocular stroke [Recovering/Resolving]

NARRATIVE: CASE EVENT DATE: 20250101
